FAERS Safety Report 7493473-1 (Version None)
Quarter: 2011Q2

REPORT INFORMATION
  Report Type: 
  Country: None (occurrence: None)
  Receive Date: 20110520
  Receipt Date: 20110506
  Transmission Date: 20111010
  Serious: Yes (Other)
  Sender: FDA-Public Use
  Company Number: US-BAYER-201026758NA

PATIENT
  Age: 64 Year
  Sex: Male

DRUGS (5)
  1. VANCOMYCIN [Concomitant]
     Dosage: UNK
     Dates: start: 20020802, end: 20020806
  2. HEPARIN [Concomitant]
     Dosage: DRIP
     Dates: start: 20021026, end: 20021029
  3. TRASYLOL [Suspect]
     Indication: CORONARY ARTERY BYPASS
     Dates: start: 20020802
  4. TRASYLOL [Suspect]
     Indication: REVISION OF INTERNAL FIXATION
  5. RED BLOOD CELLS [Concomitant]
     Indication: PRODUCT USED FOR UNKNOWN INDICATION
     Dosage: SEVERAL UNITS

REACTIONS (9)
  - RENAL FAILURE [None]
  - STRESS [None]
  - FEAR [None]
  - RENAL IMPAIRMENT [None]
  - EMOTIONAL DISTRESS [None]
  - RENAL INJURY [None]
  - ANXIETY [None]
  - INJURY [None]
  - PAIN [None]
